FAERS Safety Report 7363068-9 (Version None)
Quarter: 2011Q1

REPORT INFORMATION
  Report Type: 
  Country: None (occurrence: None)
  Receive Date: 20110321
  Receipt Date: 20110317
  Transmission Date: 20110831
  Serious: No
  Sender: FDA-Public Use
  Company Number: US-PFIZER INC-2011059477

PATIENT
  Sex: Female
  Weight: 86.168 kg

DRUGS (3)
  1. POTASSIUM [Concomitant]
     Dosage: UNK
  2. VITAMIN D [Concomitant]
     Dosage: UNK
  3. ADVIL COLD AND SINUS [Suspect]
     Indication: SINUSITIS
     Dosage: 200 UNK, UNK
     Route: 048
     Dates: start: 20110313

REACTIONS (4)
  - DIZZINESS [None]
  - INCORRECT DOSE ADMINISTERED [None]
  - GAIT DISTURBANCE [None]
  - HEADACHE [None]
